FAERS Safety Report 18625105 (Version 2)
Quarter: 2021Q2

REPORT INFORMATION
  Report Type: Spontaneous
  Country: JP (occurrence: JP)
  Receive Date: 20201216
  Receipt Date: 20210411
  Transmission Date: 20210717
  Serious: Yes (Other)
  Sender: FDA-Public Use
  Company Number: JP-UCBSA-2020051476

PATIENT
  Age: 24 Year
  Sex: Male

DRUGS (2)
  1. E KEPPRA [Concomitant]
     Active Substance: LEVETIRACETAM
     Indication: EPILEPSY
     Dosage: 4000 MILLIGRAM, DAILY
     Route: 048
  2. VIMPAT [Suspect]
     Active Substance: LACOSAMIDE
     Indication: EPILEPSY
     Dosage: 300 MG DAILY
     Route: 048

REACTIONS (2)
  - Corpus callosotomy [Unknown]
  - Dysphagia [Unknown]
